FAERS Safety Report 8613900-3 (Version None)
Quarter: 2012Q3

REPORT INFORMATION
  Report Type: 
  Country: None (occurrence: None)
  Receive Date: 20120823
  Receipt Date: 20120810
  Transmission Date: 20120928
  Serious: Yes (Life-Threatening, Hospitalization, Disabling, Other)
  Sender: FDA-Public Use
  Company Number: US-009507513-1206USA00831

PATIENT

DRUGS (8)
  1. FOSAMAX [Suspect]
     Indication: OSTEOPENIA
     Dosage: 70 MG, QW
     Route: 048
     Dates: start: 20040615, end: 20080201
  2. VITAMINS (UNSPECIFIED) [Concomitant]
     Dosage: UNK
     Route: 048
     Dates: start: 20020101
  3. PLAQUENIL [Concomitant]
     Indication: SYSTEMIC LUPUS ERYTHEMATOSUS
     Dosage: UNK
     Dates: start: 20000101
  4. FOSAMAX [Suspect]
     Indication: OSTEOPOROSIS
  5. FOSAMAX [Suspect]
     Dosage: 70 MG, UNK
     Route: 048
     Dates: start: 20080211, end: 20100531
  6. NEXIUM [Concomitant]
     Dosage: UNK
     Dates: start: 20000101, end: 20110101
  7. CALCIUM (UNSPECIFIED) [Concomitant]
     Dosage: 1200 MG, UNK
     Dates: start: 20020101
  8. VITAMIN E [Concomitant]
     Dosage: 400 MG, UNK
     Dates: start: 20040101

REACTIONS (17)
  - VITAMIN D DECREASED [None]
  - SLEEP DISORDER [None]
  - FEMUR FRACTURE [None]
  - SPINAL COLUMN STENOSIS [None]
  - PAIN IN EXTREMITY [None]
  - ARTHRALGIA [None]
  - FALL [None]
  - ACROCHORDON [None]
  - BLOOD CHOLESTEROL INCREASED [None]
  - DIVERTICULUM [None]
  - DIABETES MELLITUS [None]
  - CATARACT [None]
  - TOOTH DISORDER [None]
  - FOOT FRACTURE [None]
  - HYPERTENSION [None]
  - ARTHRITIS [None]
  - DEVICE MALFUNCTION [None]
